FAERS Safety Report 4337698-2 (Version None)
Quarter: 2004Q2

REPORT INFORMATION
  Report Type: 
  Country: None (occurrence: None)
  Receive Date: 20040408
  Receipt Date: 20040330
  Transmission Date: 20050107
  Serious: Yes (Congenital Anomaly)
  Sender: FDA-Public Use
  Company Number: 2004207063GB

PATIENT

DRUGS (4)
  1. SULFASALAZINE [Suspect]
     Dosage: ORAL
     Route: 048
  2. HYDROXYCHLOROQUINE SULFATE [Suspect]
     Dosage: ORAL
     Route: 048
  3. DICLOFENAC SODIUM [Concomitant]
  4. CO-CODAMOL [Concomitant]

REACTIONS (4)
  - ABORTION INDUCED [None]
  - COMPLICATIONS OF MATERNAL EXPOSURE TO THERAPEUTIC DRUGS [None]
  - DRUG EXPOSURE DURING PREGNANCY [None]
  - HOLOPROSENCEPHALY [None]
